FAERS Safety Report 6280306-4 (Version None)
Quarter: 2009Q3

REPORT INFORMATION
  Report Type: 
  Country: None (occurrence: None)
  Receive Date: 20090724
  Receipt Date: 20071128
  Transmission Date: 20100115
  Serious: Yes (Death)
  Sender: FDA-Public Use
  Company Number: US-ASTRAZENECA-2006UW08269

PATIENT
  Age: 11420 Day
  Sex: Female
  Weight: 48.5 kg

DRUGS (21)
  1. SEROQUEL [Suspect]
     Indication: DEPRESSION
     Dosage: 25 MG - 300MG
     Route: 048
     Dates: start: 19990101
  2. SEROQUEL [Suspect]
     Dosage: 25 MG - 600 MG
     Route: 048
     Dates: start: 20020115
  3. ZYPREXA [Concomitant]
  4. XANAX [Concomitant]
  5. KLONOPIN [Concomitant]
  6. VALIUM [Concomitant]
  7. VICODIN [Concomitant]
  8. AUINZA [Concomitant]
  9. MOXIFEN [Concomitant]
  10. AMBIEN [Concomitant]
  11. IMITREX [Concomitant]
  12. NEURONTIN [Concomitant]
  13. LITHIUM CARBONATE [Concomitant]
  14. DESYREL [Concomitant]
  15. TRILAFON [Concomitant]
  16. DIAZEPAM [Concomitant]
  17. AVINZA [Concomitant]
     Dosage: 60-90 MG
  18. CLONAZEPAM [Concomitant]
  19. HYDROCODONE [Concomitant]
     Dosage: 5/500 TID
  20. KEPPRA [Concomitant]
  21. ALPRAZOLAM [Concomitant]

REACTIONS (2)
  - DEATH [None]
  - DIABETES MELLITUS [None]
